FAERS Safety Report 20877670 (Version 1)
Quarter: 2022Q2

REPORT INFORMATION
  Report Type: Spontaneous
  Country: CA (occurrence: None)
  Receive Date: 20220526
  Receipt Date: 20220526
  Transmission Date: 20220721
  Serious: Yes (Hospitalization)
  Sender: FDA-Public Use
  Company Number: CA-ROCHE-3102008

PATIENT
  Sex: Male

DRUGS (9)
  1. RIVOTRIL [Suspect]
     Active Substance: CLONAZEPAM
     Indication: Product used for unknown indication
     Route: 065
  2. CYMBALTA [Suspect]
     Active Substance: DULOXETINE HYDROCHLORIDE
     Indication: Major depression
     Route: 065
  3. CYMBALTA [Suspect]
     Active Substance: DULOXETINE HYDROCHLORIDE
     Route: 065
  4. ZYPREXA ZYDIS [Suspect]
     Active Substance: OLANZAPINE
     Indication: Major depression
     Route: 065
  5. ESCITALOPRAM OXALATE [Suspect]
     Active Substance: ESCITALOPRAM OXALATE
     Indication: Major depression
     Route: 065
  6. ESCITALOPRAM OXALATE [Suspect]
     Active Substance: ESCITALOPRAM OXALATE
     Route: 065
  7. RISPERDAL [Concomitant]
     Active Substance: RISPERIDONE
  8. PANTOPRAZOLE SODIUM [Concomitant]
     Active Substance: PANTOPRAZOLE SODIUM
  9. TOPIRAMATE [Concomitant]
     Active Substance: TOPIRAMATE

REACTIONS (23)
  - Sleep talking [Unknown]
  - Vomiting [Unknown]
  - Chest pain [Unknown]
  - Akathisia [Unknown]
  - Photophobia [Unknown]
  - Hypervigilance [Unknown]
  - Hallucination [Unknown]
  - Nausea [Unknown]
  - Tinnitus [Unknown]
  - Suicidal ideation [Unknown]
  - Overdose [Unknown]
  - Agitation [Unknown]
  - Insomnia [Unknown]
  - Asthenia [Unknown]
  - Headache [Unknown]
  - Mania [Unknown]
  - Paranoia [Unknown]
  - Mental disorder [Unknown]
  - Somnambulism [Unknown]
  - Muscle spasms [Unknown]
  - Malaise [Unknown]
  - Thinking abnormal [Unknown]
  - Anger [Unknown]
